FAERS Safety Report 19247411 (Version 2)
Quarter: 2021Q2

REPORT INFORMATION
  Report Type: Spontaneous
  Country: US (occurrence: US)
  Receive Date: 20210512
  Receipt Date: 20210628
  Transmission Date: 20210717
  Serious: No
  Sender: FDA-Public Use
  Company Number: US-BRISTOL-MYERS SQUIBB COMPANY-BMS-2021-044677

PATIENT
  Age: 61 Year
  Sex: Male
  Weight: 136.07 kg

DRUGS (3)
  1. LASIX [Concomitant]
     Active Substance: FUROSEMIDE
     Indication: PRODUCT USED FOR UNKNOWN INDICATION
     Dosage: UNK
     Route: 065
  2. POTASSIUM [Concomitant]
     Active Substance: POTASSIUM
     Indication: PRODUCT USED FOR UNKNOWN INDICATION
     Route: 065
  3. ELIQUIS [Suspect]
     Active Substance: APIXABAN
     Indication: PROTEIN S DEFICIENCY
     Dosage: 5 MILLIGRAM, BID
     Route: 048
     Dates: start: 20210302

REACTIONS (1)
  - Intentional product use issue [Unknown]

NARRATIVE: CASE EVENT DATE: 20210302
